FAERS Safety Report 21020422 (Version 1)
Quarter: 2022Q2

REPORT INFORMATION
  Report Type: Spontaneous
  Country: MY (occurrence: MY)
  Receive Date: 20220629
  Receipt Date: 20220629
  Transmission Date: 20220721
  Serious: Yes (Other)
  Sender: FDA-Public Use
  Company Number: MY-BEH-2022146778

PATIENT
  Age: 24 Year
  Sex: Female

DRUGS (3)
  1. HUMAN IMMUNOGLOBULIN G [Suspect]
     Active Substance: HUMAN IMMUNOGLOBULIN G
     Indication: Encephalitis autoimmune
     Dosage: 0.4G/KG ONCE A DAY FOR 5 DAYS
     Route: 042
  2. HUMAN IMMUNOGLOBULIN G [Suspect]
     Active Substance: HUMAN IMMUNOGLOBULIN G
     Indication: Cotard^s syndrome
  3. METHYLPREDNISOLONE [Concomitant]
     Active Substance: METHYLPREDNISOLONE
     Indication: Encephalitis autoimmune
     Dosage: 500 MILLIGRAM, OD
     Route: 042

REACTIONS (13)
  - Anaphylactic reaction [Unknown]
  - Pyrexia [Unknown]
  - Tachycardia [Unknown]
  - Dizziness [Unknown]
  - Headache [Unknown]
  - Chills [Unknown]
  - Chest pain [Unknown]
  - Nausea [Unknown]
  - Vomiting [Unknown]
  - Diarrhoea [Unknown]
  - Rash maculo-papular [Unknown]
  - No adverse event [Unknown]
  - Off label use [Unknown]
